FAERS Safety Report 21331640 (Version 1)
Quarter: 2022Q3

REPORT INFORMATION
  Report Type: Report from Study
  Country: GB (occurrence: GB)
  Receive Date: 20220914
  Receipt Date: 20220914
  Transmission Date: 20221027
  Serious: Yes (Hospitalization, Other)
  Sender: FDA-Public Use
  Company Number: GB-CELLTRION INC.-2022GB014667

PATIENT

DRUGS (3)
  1. RITUXIMAB [Suspect]
     Active Substance: RITUXIMAB
     Indication: Follicular lymphoma
     Dosage: THE LAST DOSE OF RITUXIMAB PRIOR TO THE SERIOUS ADVERSE EVENT (SAE) WAS TAKEN ON 14/JUL/2022./EVERY
     Route: 042
  2. TAFASITAMAB [Suspect]
     Active Substance: TAFASITAMAB
     Indication: Follicular lymphoma
     Dosage: THE LAST DOSE OF STUDY DRUG PRIOR TO THE SAE WAS TAKEN ON 28JUL2022./ DOSE:1 (NO UNIT)/BLINDED TAFAS
     Route: 042
     Dates: start: 20220614, end: 20220804
  3. LENALIDOMIDE [Suspect]
     Active Substance: LENALIDOMIDE
     Indication: Follicular lymphoma
     Dosage: THE LAST DOSE OF LENALIDOMIDE PRIOR TO THE SAE WAS TAKEN ON: 31/JUL/2022.
     Route: 048
     Dates: start: 20220614, end: 20220801

REACTIONS (1)
  - Febrile neutropenia [Not Recovered/Not Resolved]

NARRATIVE: CASE EVENT DATE: 20220731
